FAERS Safety Report 23546158 (Version 1)
Quarter: 2024Q1

REPORT INFORMATION
  Report Type: Spontaneous
  Country: US (occurrence: US)
  Receive Date: 20240220
  Receipt Date: 20240220
  Transmission Date: 20240410
  Serious: No
  Sender: FDA-Public Use
  Company Number: US-BIOGEN-2024BI01250520

PATIENT
  Sex: Male

DRUGS (2)
  1. QALSODY [Suspect]
     Active Substance: TOFERSEN
     Indication: Amyotrophic lateral sclerosis
     Dosage: 1ST DOSE
     Route: 050
     Dates: start: 20240126
  2. QALSODY [Suspect]
     Active Substance: TOFERSEN
     Dosage: 2ND DOSE
     Route: 050
     Dates: start: 20240209

REACTIONS (1)
  - Procedural pain [Unknown]

NARRATIVE: CASE EVENT DATE: 20240126
